FAERS Safety Report 6709914-0 (Version None)
Quarter: 2010Q2

REPORT INFORMATION
  Report Type: 
  Country: None (occurrence: None)
  Receive Date: 20100504
  Receipt Date: 20100430
  Transmission Date: 20101027
  Serious: Yes (Hospitalization)
  Sender: FDA-Public Use
  Company Number: US-BRISTOL-MYERS SQUIBB COMPANY-15087323

PATIENT
  Age: 8 Year
  Sex: Male
  Weight: 36 kg

DRUGS (4)
  1. ABILIFY [Suspect]
     Indication: ATTENTION DEFICIT/HYPERACTIVITY DISORDER
     Dosage: DOSE INCREASED TO 2.5 MG TID, FROM 21DEC09.
     Dates: start: 20091006
  2. ABILIFY [Suspect]
     Indication: OPPOSITIONAL DEFIANT DISORDER
     Dosage: DOSE INCREASED TO 2.5 MG TID, FROM 21DEC09.
     Dates: start: 20091006
  3. ABILIFY [Suspect]
     Indication: DEPRESSION
     Dosage: DOSE INCREASED TO 2.5 MG TID, FROM 21DEC09.
     Dates: start: 20091006
  4. VYVANSE [Concomitant]

REACTIONS (4)
  - AGGRESSION [None]
  - DYSPHORIA [None]
  - IMPULSE-CONTROL DISORDER [None]
  - SOMNOLENCE [None]
